FAERS Safety Report 4337914-7 (Version None)
Quarter: 2004Q2

REPORT INFORMATION
  Report Type: 
  Country: None (occurrence: None)
  Receive Date: 20040407
  Receipt Date: 20040324
  Transmission Date: 20050107
  Serious: Yes (Other)
  Sender: FDA-Public Use
  Company Number: NSADSS2002005898

PATIENT
  Age: 52 Year
  Sex: Male

DRUGS (4)
  1. REMICADE [Suspect]
     Indication: RHEUMATOID ARTHRITIS
     Dosage: 1 IN 1 TOTAL, INTRAVENOUS DRIP
     Route: 041
     Dates: start: 20000621, end: 20001129
  2. METHOTREXATE [Suspect]
     Indication: DRUG USE FOR UNKNOWN INDICATION
  3. NONSTEROIDAL ANTI-INFLAMMATORY AGENT (NOS) (NSAID'S) [Concomitant]
  4. ACFOL (FOLIC ACID) [Concomitant]

REACTIONS (1)
  - PULMONARY TUBERCULOSIS [None]
